FAERS Safety Report 9539883 (Version 1)
Quarter: 2013Q3

REPORT INFORMATION
  Report Type: Spontaneous
  Country: JP (occurrence: JP)
  Receive Date: 20130920
  Receipt Date: 20130920
  Transmission Date: 20140515
  Serious: Yes (Other)
  Sender: FDA-Public Use
  Company Number: JP-ASTRAZENECA-2013SE69129

PATIENT
  Age: 77 Year
  Sex: Male

DRUGS (3)
  1. DIPRIVAN [Suspect]
     Indication: GENERAL ANAESTHESIA
     Route: 042
  2. FENTANYL [Concomitant]
     Indication: GENERAL ANAESTHESIA
  3. ROCURONIUM [Concomitant]
     Indication: GENERAL ANAESTHESIA

REACTIONS (4)
  - Delayed recovery from anaesthesia [Recovered/Resolved]
  - Pain [Recovered/Resolved]
  - Chills [Recovered/Resolved]
  - Sputum retention [Recovered/Resolved]
